FAERS Safety Report 13916274 (Version 5)
Quarter: 2018Q2

REPORT INFORMATION
  Report Type: Spontaneous
  Country: FR (occurrence: FR)
  Receive Date: 20170829
  Receipt Date: 20180612
  Transmission Date: 20180711
  Serious: Yes (Hospitalization, Other)
  Sender: FDA-Public Use
  Company Number: FR-AXELLIA-001163

PATIENT
  Age: 14 Year
  Sex: Female
  Weight: 39 kg

DRUGS (14)
  1. TRIMETHOPRIM. [Concomitant]
     Active Substance: TRIMETHOPRIM
     Dosage: STARTED THE DAY 159
  2. AMPHOTERICIN B/AMPHOTERICIN B/LIPOSOME [Concomitant]
     Dosage: STARTED THE DAY 159
  3. GRANULOCYTE COLONY STIMULATING [Concomitant]
     Active Substance: GRANULOCYTE COLONY-STIMULATING FACTOR NOS
     Dosage: FROM THE DAY 154 TO DAY 164
  4. AMIKACIN. [Concomitant]
     Active Substance: AMIKACIN
     Dosage: STARTED THE DAY 155
  5. IMIPENEM [Concomitant]
     Active Substance: IMIPENEM
     Dosage: STARTED THE DAY 155
  6. VINCRISTINE [Interacting]
     Active Substance: VINCRISTINE
     Indication: ACUTE LYMPHOCYTIC LEUKAEMIA
     Dosage: FRALLE 2000-BT PROTOCOL
     Route: 042
  7. VANCOMYCIN [Concomitant]
     Active Substance: VANCOMYCIN
     Dosage: STARTED THE DAY 155
  8. GABAPENTIN. [Concomitant]
     Active Substance: GABAPENTIN
     Dosage: FROM THE DAY 154 TO DAY 164
  9. SULFAMETHOXAZOLE/SULFAMETHOXAZOLE SODIUM [Concomitant]
     Dosage: STARTED THE DAY 159
  10. CASPOFUNGIN [Concomitant]
     Active Substance: CASPOFUNGIN
     Dosage: LAST DOSE THE DAY 164
  11. PARACETAMOL [Concomitant]
     Active Substance: ACETAMINOPHEN
     Dosage: FROM THE DAY 154 TO DAY 164
  12. FUROSEMIDE. [Concomitant]
     Active Substance: FUROSEMIDE
     Dosage: STARTED THE DAY 159
  13. VORICONAZOLE. [Suspect]
     Active Substance: VORICONAZOLE
     Indication: BRONCHOPULMONARY ASPERGILLOSIS
     Dosage: RECEIVED 300 MG EVERY 12 HOUR VIA IV DRIP AND ALSO RECEIVED 350 MG/12HOUR
     Route: 042
  14. PHLOROGLUCINOL [Concomitant]
     Active Substance: PHLOROGLUCINOL
     Dosage: FROM THE DAY 154 TO DAY 164

REACTIONS (12)
  - Neuralgia [Recovered/Resolved]
  - Disorientation [Recovering/Resolving]
  - Confusional state [Recovering/Resolving]
  - Hypoaesthesia [Unknown]
  - Hallucination, auditory [Recovered/Resolved]
  - Encephalopathy [Recovered/Resolved]
  - Treatment failure [Unknown]
  - Condition aggravated [Recovered/Resolved]
  - Musculoskeletal pain [Unknown]
  - Drug interaction [Unknown]
  - Hallucination, visual [Recovered/Resolved]
  - Arthralgia [Unknown]
